FAERS Safety Report 4372991-9 (Version None)
Quarter: 2004Q2

REPORT INFORMATION
  Report Type: 
  Country: None (occurrence: None)
  Receive Date: 20040603
  Receipt Date: 20040518
  Transmission Date: 20050107
  Serious: Yes (Death, Life-Threatening, Hospitalization)
  Sender: FDA-Public Use
  Company Number: US_021088817

PATIENT
  Age: 72 Year
  Sex: Male
  Weight: 69 kg

DRUGS (8)
  1. PEMETREXED (LY231514) [Suspect]
     Indication: MESOTHELIOMA
     Dosage: 500 MG/M2
     Dates: start: 20021004, end: 20021004
  2. CISPLATIN [Suspect]
     Indication: MESOTHELIOMA
     Dosage: 128.3 MG
     Dates: start: 20021004, end: 20021004
  3. SYNTHROID [Concomitant]
  4. LOVASTATIN [Concomitant]
  5. ALLEGRA [Concomitant]
  6. NASONEX [Concomitant]
  7. PULMICORT [Concomitant]
  8. TRIAMTERENE AND HYDROCHLOROTHIAZIDE [Concomitant]

REACTIONS (4)
  - BLOOD PRESSURE DIASTOLIC INCREASED [None]
  - CEREBROVASCULAR ACCIDENT [None]
  - HEART RATE INCREASED [None]
  - TRANSIENT ISCHAEMIC ATTACK [None]
